FAERS Safety Report 13017086 (Version 1)
Quarter: 2016Q4

REPORT INFORMATION
  Report Type: Spontaneous
  Country: FR (occurrence: FR)
  Receive Date: 20161212
  Receipt Date: 20161212
  Transmission Date: 20170207
  Serious: Yes (Death, Other)
  Sender: FDA-Public Use
  Company Number: FR-BAXTER-2016BAX062186

PATIENT
  Age: 8 Year
  Sex: Female

DRUGS (38)
  1. HOLOXAN 2000 MG, POUDRE POUR USAGE PARENT?RAL [Suspect]
     Active Substance: IFOSFAMIDE
     Dosage: CURE N?7: D1
     Route: 065
     Dates: start: 20160625
  2. NAVELBINE [Suspect]
     Active Substance: VINORELBINE TARTRATE
     Indication: EMBRYONAL RHABDOMYOSARCOMA
     Dosage: CYCLE 1 DAY 1
     Route: 065
     Dates: start: 20161006, end: 20161021
  3. VINCRISTINE [Suspect]
     Active Substance: VINCRISTINE
     Dosage: CURE N?9: D1
     Route: 065
     Dates: start: 20160816
  4. DACTINOMYCIN [Suspect]
     Active Substance: DACTINOMYCIN
     Dosage: CURE N?9: D1
     Route: 065
     Dates: start: 20160816
  5. DACTINOMYCIN [Suspect]
     Active Substance: DACTINOMYCIN
     Dosage: CURE OF ACTINOMYCINE N?2
     Route: 065
     Dates: start: 20160920
  6. VINCRISTINE [Suspect]
     Active Substance: VINCRISTINE
     Dosage: CURE N?6: D1
     Route: 065
     Dates: start: 20160604
  7. DACTINOMYCIN [Suspect]
     Active Substance: DACTINOMYCIN
     Dosage: CURE N?4: D1
     Route: 065
     Dates: start: 20160420
  8. HOLOXAN 2000 MG, POUDRE POUR USAGE PARENT?RAL [Suspect]
     Active Substance: IFOSFAMIDE
     Indication: EMBRYONAL RHABDOMYOSARCOMA
     Dosage: CURE N?1: D1
     Route: 065
     Dates: start: 20160217
  9. HOLOXAN 2000 MG, POUDRE POUR USAGE PARENT?RAL [Suspect]
     Active Substance: IFOSFAMIDE
     Dosage: CURE N?4: D1
     Route: 065
     Dates: start: 20160420
  10. HOLOXAN 2000 MG, POUDRE POUR USAGE PARENT?RAL [Suspect]
     Active Substance: IFOSFAMIDE
     Dosage: CURE N?9: D1
     Route: 065
     Dates: start: 20160816
  11. ENDOXAN 50 MG, COMPRIM? ENROB? [Suspect]
     Active Substance: CYCLOPHOSPHAMIDE
     Dosage: AT DINNER
     Route: 048
     Dates: start: 20161105
  12. VINCRISTINE [Suspect]
     Active Substance: VINCRISTINE
     Dosage: CURE N?5: D1
     Route: 065
     Dates: start: 20160512
  13. DACTINOMYCIN [Suspect]
     Active Substance: DACTINOMYCIN
     Indication: EMBRYONAL RHABDOMYOSARCOMA
     Dosage: CURE N?1: D1
     Route: 065
     Dates: start: 20160217
  14. DACTINOMYCIN [Suspect]
     Active Substance: DACTINOMYCIN
     Dosage: CURE N?5: D1
     Route: 065
     Dates: start: 20160512
  15. ZOPHREN [Concomitant]
     Active Substance: ONDANSETRON
     Indication: PRODUCT USED FOR UNKNOWN INDICATION
     Route: 065
  16. HOLOXAN 2000 MG, POUDRE POUR USAGE PARENT?RAL [Suspect]
     Active Substance: IFOSFAMIDE
     Dosage: CURE N?5: D1
     Route: 065
     Dates: start: 20160512
  17. NAVELBINE [Suspect]
     Active Substance: VINORELBINE TARTRATE
     Indication: OFF LABEL USE
  18. VINCRISTINE [Suspect]
     Active Substance: VINCRISTINE
     Dosage: CURE N?8: D1
     Route: 065
     Dates: start: 20160718
  19. DACTINOMYCIN [Suspect]
     Active Substance: DACTINOMYCIN
     Dosage: CURE N?3: D1
     Route: 065
     Dates: start: 20160330
  20. MICROPAKINE [Concomitant]
     Active Substance: VALPROIC ACID
     Indication: PRODUCT USED FOR UNKNOWN INDICATION
     Dosage: PROLONGED RELEASED
     Route: 065
  21. HOLOXAN 2000 MG, POUDRE POUR USAGE PARENT?RAL [Suspect]
     Active Substance: IFOSFAMIDE
     Dosage: CURE N?3: D1
     Route: 065
     Dates: start: 20160330
  22. VINCRISTINE [Suspect]
     Active Substance: VINCRISTINE
     Dosage: CURE N?2: D1
     Route: 065
     Dates: start: 20160309
  23. VINCRISTINE [Suspect]
     Active Substance: VINCRISTINE
     Dosage: CURE N?4: D1
     Route: 065
     Dates: start: 20160420
  24. DACTINOMYCIN [Suspect]
     Active Substance: DACTINOMYCIN
     Dosage: CURE N?8: D1
     Route: 065
     Dates: start: 20160718
  25. ENDOXAN 50 MG, COMPRIM? ENROB? [Suspect]
     Active Substance: CYCLOPHOSPHAMIDE
     Dosage: AT DINNER
     Route: 048
     Dates: start: 20161106
  26. RIVOTRIL [Concomitant]
     Active Substance: CLONAZEPAM
     Indication: PRODUCT USED FOR UNKNOWN INDICATION
     Dosage: IF NEEDED
     Route: 065
  27. ENDOXAN 50 MG, COMPRIM? ENROB? [Suspect]
     Active Substance: CYCLOPHOSPHAMIDE
     Indication: EMBRYONAL RHABDOMYOSARCOMA
     Route: 048
     Dates: start: 20161006
  28. ENDOXAN 50 MG, COMPRIM? ENROB? [Suspect]
     Active Substance: CYCLOPHOSPHAMIDE
     Indication: OFF LABEL USE
     Dosage: AT DINNER
     Route: 048
     Dates: start: 20161104
  29. VINCRISTINE [Suspect]
     Active Substance: VINCRISTINE
     Dosage: CURE N?3: D1
     Route: 065
     Dates: start: 20160330
  30. DACTINOMYCIN [Suspect]
     Active Substance: DACTINOMYCIN
     Dosage: CURE OF ACTINOMYCINE N?1
     Route: 065
     Dates: start: 20160906
  31. PARACETAMOL [Concomitant]
     Active Substance: ACETAMINOPHEN
     Indication: PRODUCT USED FOR UNKNOWN INDICATION
     Dosage: IF NEEDED
     Route: 065
  32. HOLOXAN 2000 MG, POUDRE POUR USAGE PARENT?RAL [Suspect]
     Active Substance: IFOSFAMIDE
     Dosage: CURE N?2: D1
     Route: 065
     Dates: start: 20160309
  33. HOLOXAN 2000 MG, POUDRE POUR USAGE PARENT?RAL [Suspect]
     Active Substance: IFOSFAMIDE
     Dosage: CURE N?6: D1
     Route: 065
     Dates: start: 20160604
  34. HOLOXAN 2000 MG, POUDRE POUR USAGE PARENT?RAL [Suspect]
     Active Substance: IFOSFAMIDE
     Dosage: CURE N?8: D1
     Route: 065
     Dates: start: 20160718
  35. VINCRISTINE [Suspect]
     Active Substance: VINCRISTINE
     Indication: EMBRYONAL RHABDOMYOSARCOMA
     Dosage: CURE N?1: D1
     Route: 065
     Dates: start: 20160217
  36. VINCRISTINE [Suspect]
     Active Substance: VINCRISTINE
     Dosage: CURE N?7: D1
     Route: 065
     Dates: start: 20160625
  37. DACTINOMYCIN [Suspect]
     Active Substance: DACTINOMYCIN
     Dosage: CURE N?2: D1
     Route: 065
     Dates: start: 20160309
  38. MORPHINE [Suspect]
     Active Substance: MORPHINE
     Indication: HEADACHE
     Route: 065
     Dates: start: 20161107

REACTIONS (12)
  - Vomiting [Fatal]
  - Arrhythmia [Fatal]
  - Off label use [Unknown]
  - Epilepsy [Fatal]
  - Headache [Fatal]
  - Metastases to meninges [Unknown]
  - Epistaxis [Unknown]
  - Muscle spasms [Unknown]
  - Dyspnoea [Unknown]
  - Bradypnoea [Fatal]
  - Metastases to meninges [Unknown]
  - Meningitis noninfective [Unknown]

NARRATIVE: CASE EVENT DATE: 20160801
